FAERS Safety Report 10338226 (Version 1)
Quarter: 2014Q3

REPORT INFORMATION
  Report Type: Spontaneous
  Country: US (occurrence: None)
  Receive Date: 20140723
  Receipt Date: 20140723
  Transmission Date: 20150326
  Serious: Yes (Life-Threatening, Hospitalization)
  Sender: FDA-Public Use
  Company Number: None

PATIENT
  Age: 67 Year
  Sex: Male

DRUGS (2)
  1. LISINOPRIL. [Suspect]
     Active Substance: LISINOPRIL
     Indication: HYPERTENSION
  2. EPLERENONE. [Suspect]
     Active Substance: EPLERENONE
     Indication: HYPERTENSION

REACTIONS (1)
  - Angioedema [None]

NARRATIVE: CASE EVENT DATE: 20140109
